FAERS Safety Report 7679393-8 (Version None)
Quarter: 2011Q3

REPORT INFORMATION
  Report Type: 
  Country: None (occurrence: None)
  Receive Date: 20110812
  Receipt Date: 20110801
  Transmission Date: 20111222
  Serious: Yes (Hospitalization)
  Sender: FDA-Public Use
  Company Number: US-JNJFOC-20100107396

PATIENT
  Sex: Male
  Weight: 46.7 kg

DRUGS (8)
  1. REMICADE [Suspect]
     Indication: CROHN'S DISEASE
     Route: 042
     Dates: start: 20090617
  2. REMICADE [Suspect]
     Route: 042
     Dates: start: 20100101
  3. FLAGYL [Concomitant]
  4. BENTYL [Concomitant]
     Dosage: PRN
  5. REMICADE [Suspect]
     Dosage: 6TH INFUSION
     Route: 042
     Dates: start: 20091218
  6. REMICADE [Suspect]
     Dosage: TOTAL 8 DOSES
     Route: 042
     Dates: start: 20100226
  7. BENADRYL [Concomitant]
     Indication: PREMEDICATION
  8. ZOFRAN [Concomitant]
     Dosage: PRN

REACTIONS (5)
  - ARTHRALGIA [None]
  - CONDITION AGGRAVATED [None]
  - CROHN'S DISEASE [None]
  - MALNUTRITION [None]
  - HEADACHE [None]
